FAERS Safety Report 5566767-4 (Version None)
Quarter: 2007Q4

REPORT INFORMATION
  Report Type: 
  Country: None (occurrence: None)
  Receive Date: 20071219
  Receipt Date: 20071211
  Transmission Date: 20080405
  Serious: Yes (Hospitalization)
  Sender: FDA-Public Use
  Company Number: A0676438A

PATIENT
  Age: 46 Year
  Sex: Male

DRUGS (9)
  1. AVANDIA [Suspect]
     Dosage: 4MG PER DAY
     Route: 048
     Dates: start: 20041101
  2. LANTUS [Concomitant]
     Dosage: 30UNIT IN THE MORNING
     Dates: start: 20041101
  3. MARIJUANA [Concomitant]
  4. COCAINE [Concomitant]
  5. ALCOHOL [Concomitant]
  6. METFORMIN HCL [Concomitant]
     Dosage: 10MG TWICE PER DAY
     Route: 048
  7. NEURONTIN [Concomitant]
     Dosage: 300MG THREE TIMES PER DAY
     Route: 048
  8. ELAVIL [Concomitant]
     Dosage: 25MG AT NIGHT
     Route: 048
  9. PEPCID [Concomitant]
     Dosage: 20MG TWICE PER DAY

REACTIONS (9)
  - ACUTE MYOCARDIAL INFARCTION [None]
  - CARDIAC FAILURE CONGESTIVE [None]
  - CARDIAC HYPERTROPHY [None]
  - CHEST PAIN [None]
  - CORONARY ARTERY DISEASE [None]
  - HAEMATOMA [None]
  - INJURY [None]
  - LUNG HYPERINFLATION [None]
  - PAIN [None]
